FAERS Safety Report 7265689-0 (Version None)
Quarter: 2011Q1

REPORT INFORMATION
  Report Type: 
  Country: None (occurrence: None)
  Receive Date: 20110120
  Receipt Date: 20110106
  Transmission Date: 20110831
  Serious: No
  Sender: FDA-Public Use
  Company Number: 2010SP062515

PATIENT
  Age: 36 Year
  Sex: Male

DRUGS (5)
  1. PAROXETINE HYDROCHLORIDE [Concomitant]
  2. LITHIUM CARBONATE [Concomitant]
  3. TRAZODONE HYDROCHLORIDE [Concomitant]
  4. LORMETAZEPAM [Concomitant]
  5. REFLEX (MIRTAZAPINE /01293201/) [Suspect]
     Indication: DEPRESSION
     Dosage: 15 MG; QD; PO
     Route: 048
     Dates: start: 20100621, end: 20100704

REACTIONS (2)
  - MALAISE [None]
  - MOVEMENT DISORDER [None]
